FAERS Safety Report 13167968 (Version 1)
Quarter: 2017Q1

REPORT INFORMATION
  Report Type: Spontaneous
  Country: US (occurrence: US)
  Receive Date: 20170131
  Receipt Date: 20170131
  Transmission Date: 20170428
  Serious: No
  Sender: FDA-Public Use
  Company Number: US-PFIZER INC-2017034458

PATIENT
  Age: 66 Year
  Sex: Male

DRUGS (7)
  1. SUTENT [Suspect]
     Active Substance: SUNITINIB MALATE
     Indication: METASTATIC RENAL CELL CARCINOMA
     Dosage: 50 MG, CYCLIC [4 WEEKS AND 2 WEEKS OFF CYCLE]
     Dates: start: 20140501, end: 201410
  2. SUTENT [Suspect]
     Active Substance: SUNITINIB MALATE
     Dosage: 50 MG, CYCLIC [ 50MG/D X 4 WKS ON AND 2 WKS OFF ON]
     Dates: start: 20150128
  3. AMLODIPINE [Concomitant]
     Active Substance: AMLODIPINE BESYLATE
     Dosage: 5 MG, DAILY
     Route: 048
  4. TUMS [Concomitant]
     Active Substance: CALCIUM CARBONATE
     Indication: DYSPEPSIA
     Dosage: 500 MG, AS NEEDED [TID]
     Route: 048
  5. PEPCID [Concomitant]
     Active Substance: FAMOTIDINE
     Dosage: 20 MG, 2X/DAY
     Route: 048
  6. ERYTHROMYCIN. [Concomitant]
     Active Substance: ERYTHROMYCIN
     Dosage: UNK, 4X/DAY [APPLY A THIN FILM TO AFFECTED AREA EVERY 6 HOURS FOR 10 DAYS AFTER WASHING]
     Route: 061
  7. LATANOPROST. [Concomitant]
     Active Substance: LATANOPROST
     Dosage: 2 GTT, DAILY [1 DROP BOTH EYES DAILY]
     Route: 047

REACTIONS (6)
  - Skin ulcer [Recovering/Resolving]
  - Blood pressure increased [Unknown]
  - Cystitis [Unknown]
  - Neoplasm recurrence [Unknown]
  - Impaired healing [Recovering/Resolving]
  - Atelectasis [Unknown]
